FAERS Safety Report 6792829-X (Version None)
Quarter: 2010Q2

REPORT INFORMATION
  Report Type: 
  Country: None (occurrence: None)
  Receive Date: 20100624
  Receipt Date: 20080909
  Transmission Date: 20101027
  Serious: No
  Sender: FDA-Public Use
  Company Number: US-PFIZER INC-2008089254

PATIENT
  Sex: Female

DRUGS (6)
  1. PROCARDIA XL [Suspect]
     Indication: HYPERTENSION
     Dosage: 60 MG,ONCE DAILY
     Route: 048
  2. LIPITOR [Suspect]
  3. METOPROLOL [Suspect]
  4. COENZYME Q10 [Suspect]
  5. HYDROCHLOROTHIAZIDE [Suspect]
  6. CLONIDINE [Suspect]
     Dosage: 0.1 MG,DAILY
     Route: 048

REACTIONS (2)
  - DRY SKIN [None]
  - RASH [None]
